FAERS Safety Report 23610254 (Version 1)
Quarter: 2024Q1

REPORT INFORMATION
  Report Type: Spontaneous
  Country: US (occurrence: None)
  Receive Date: 20240307
  Receipt Date: 20240307
  Transmission Date: 20240410
  Serious: Yes (Hospitalization)
  Sender: FDA-Public Use
  Company Number: None

PATIENT
  Sex: Female

DRUGS (4)
  1. GLATIRAMER ACETATE [Suspect]
     Active Substance: GLATIRAMER ACETATE
     Indication: Multiple sclerosis
     Dosage: 40MG 3 TIMES A WEEK SUBCUTANEOUS
     Route: 058
     Dates: start: 202108
  2. NURTEC ODT [Suspect]
     Active Substance: RIMEGEPANT SULFATE
  3. SULFAMETHOXAZOLE [Suspect]
     Active Substance: SULFAMETHOXAZOLE
  4. TRIMETHOPRIM [Suspect]
     Active Substance: TRIMETHOPRIM

REACTIONS (7)
  - Drug hypersensitivity [None]
  - Urticaria [None]
  - Vomiting [None]
  - Nausea [None]
  - Headache [None]
  - Arthralgia [None]
  - Urinary tract infection [None]
